FAERS Safety Report 4926650-1 (Version None)
Quarter: 2006Q1

REPORT INFORMATION
  Report Type: 
  Country: None (occurrence: None)
  Receive Date: 20060228
  Receipt Date: 20050517
  Transmission Date: 20060701
  Serious: No
  Sender: FDA-Public Use
  Company Number: US-GLAXOSMITHKLINE-A0558991A

PATIENT
  Age: 58 Year
  Sex: Female

DRUGS (3)
  1. LAMICTAL [Suspect]
     Dosage: 100MG TWICE PER DAY
     Route: 048
     Dates: start: 20041101
  2. TOPROL [Concomitant]
  3. DIOVAN [Concomitant]

REACTIONS (3)
  - HERPES SIMPLEX [None]
  - LYMPHADENOPATHY [None]
  - RASH [None]
